FAERS Safety Report 5611630-3 (Version None)
Quarter: 2008Q1

REPORT INFORMATION
  Report Type: 
  Country: None (occurrence: None)
  Receive Date: 20080201
  Receipt Date: 20080124
  Transmission Date: 20080703
  Serious: Yes (Disabling)
  Sender: FDA-Public Use
  Company Number: DE-ABBOTT-07P-062-0426897-00

PATIENT
  Sex: Male
  Weight: 78 kg

DRUGS (5)
  1. HUMIRA [Suspect]
     Indication: ANKYLOSING SPONDYLITIS
     Route: 058
     Dates: start: 20071017, end: 20071130
  2. CORTISONE [Concomitant]
     Indication: RHEUMATOID ARTHRITIS
  3. PAIN PATCH [Concomitant]
     Indication: PAIN
  4. PREDNISOLONE [Concomitant]
     Indication: DRUG USE FOR UNKNOWN INDICATION
     Route: 048
     Dates: start: 20070401
  5. RANTUDIL RETARD [Concomitant]
     Indication: DRUG USE FOR UNKNOWN INDICATION
     Route: 048
     Dates: start: 20050301

REACTIONS (6)
  - AGITATION [None]
  - HEADACHE [None]
  - LEUKOENCEPHALOMYELITIS [None]
  - MALAISE [None]
  - PARAESTHESIA [None]
  - SENSORY DISTURBANCE [None]
